FAERS Safety Report 7250227-9 (Version None)
Quarter: 2011Q1

REPORT INFORMATION
  Report Type: 
  Country: None (occurrence: None)
  Receive Date: 20110128
  Receipt Date: 20110112
  Transmission Date: 20110831
  Serious: Yes (Other)
  Sender: FDA-Public Use
  Company Number: JP-BAYER-201014572BYL

PATIENT
  Sex: Male
  Weight: 73 kg

DRUGS (3)
  1. NEXAVAR [Suspect]
     Indication: HEPATIC NEOPLASM MALIGNANT
     Route: 048
     Dates: start: 20100807
  2. LIVACT [Concomitant]
     Indication: HEPATIC FUNCTION ABNORMAL
     Dosage: 12 G (DAILY DOSE), , ORAL
     Route: 048
     Dates: start: 20100804, end: 20100901
  3. FALKAMIN [Concomitant]
     Indication: HEPATIC FUNCTION ABNORMAL
     Dosage: 12 G, QD
     Route: 048
     Dates: start: 20100804, end: 20100901

REACTIONS (3)
  - LOSS OF CONSCIOUSNESS [None]
  - PALMAR-PLANTAR ERYTHRODYSAESTHESIA SYNDROME [None]
  - BLISTER [None]
